FAERS Safety Report 8501462-0 (Version None)
Quarter: 2012Q3

REPORT INFORMATION
  Report Type: 
  Country: None (occurrence: None)
  Receive Date: 20120710
  Receipt Date: 20120703
  Transmission Date: 20120928
  Serious: Yes (Hospitalization, Disabling, Other)
  Sender: FDA-Public Use
  Company Number: BR-ROCHE-720062

PATIENT
  Sex: Female
  Weight: 77 kg

DRUGS (30)
  1. CYCLOBENZAPRINE [Concomitant]
  2. ACECLOFENAC [Concomitant]
  3. FLUTICASONE FUROATE [Concomitant]
  4. AZITHROMYCIN [Suspect]
     Indication: NASOPHARYNGITIS
     Dosage: OTHER INDICATION: ASTHMA
     Route: 065
  5. CELEBREX [Concomitant]
     Indication: PAIN
  6. DIURISA [Concomitant]
     Indication: POLYURIA
  7. NEOMYCIN SULFATE TAB [Concomitant]
     Indication: GASTROINTESTINAL DISORDER
  8. MABTHERA [Suspect]
     Dosage: ROUTE: ENDOVENOUS; DOSE: 100MG/10ML, FREQUENCY: 1000 MG, SECOND INFUSION WAS GIVEN ON 14 JULY 2010.
     Route: 042
     Dates: start: 20100601, end: 20110817
  9. OMEPRAZOLE [Concomitant]
     Indication: GASTRIC DISORDER
  10. ACETAMINOPHEN [Concomitant]
     Indication: PAIN
  11. PENTALAC [Concomitant]
     Indication: GASTROINTESTINAL DISORDER
     Dosage: 3 OR 4 TIMES/DAY, OTHER INDICATION STOMACH CRISIS
  12. DOMPERIDONE [Concomitant]
     Dosage: INDICATION: STOMACH CRISIS
  13. BAMIFIX [Concomitant]
  14. LYRICA [Concomitant]
  15. PREDNISONE [Concomitant]
     Indication: PAIN
  16. DOMPERIDONE [Concomitant]
     Dosage: WHEN NECESSARY
  17. ACETAMINOPHEN [Concomitant]
  18. LIPLESS [Concomitant]
  19. CORTISONE ACETATE [Concomitant]
  20. PREGABALIN [Concomitant]
  21. TRAMADOL HYDROCHLORIDE [Concomitant]
     Indication: PAIN
  22. ACETAMINOPHEN [Concomitant]
     Indication: PREMEDICATION
  23. MABTHERA [Suspect]
     Indication: RHEUMATOID ARTHRITIS
     Route: 042
     Dates: start: 20081117, end: 20081117
  24. MABTHERA [Suspect]
     Route: 042
     Dates: start: 20081204, end: 20081204
  25. DICLOFENAC SODIUM [Concomitant]
  26. AMLODIPINE [Concomitant]
  27. LOSARTAN POTASSIUM [Concomitant]
  28. PENICILLAMINE [Concomitant]
     Indication: RHEUMATOID ARTHRITIS
  29. LOSARTAN POTASSIUM [Concomitant]
     Indication: HYPERTENSION
     Dosage: DRUG: LOSARTANA
  30. DIUPRESS [Concomitant]

REACTIONS (39)
  - ENCEPHALOPATHY [None]
  - NASOPHARYNGITIS [None]
  - SWELLING [None]
  - ERYTHEMA [None]
  - RHEUMATOID ARTHRITIS [None]
  - ASTHMA [None]
  - DIZZINESS [None]
  - HEADACHE [None]
  - HYPERTENSION [None]
  - MEMORY IMPAIRMENT [None]
  - BRONCHITIS [None]
  - BACK PAIN [None]
  - SCIATICA [None]
  - BODY HEIGHT DECREASED [None]
  - HYPERAESTHESIA [None]
  - ARTHRALGIA [None]
  - MUSCULOSKELETAL DEFORMITY [None]
  - EXOSTOSIS [None]
  - PALPITATIONS [None]
  - GASTRITIS [None]
  - DECREASED IMMUNE RESPONSIVENESS [None]
  - PAIN [None]
  - OSTEOARTHRITIS [None]
  - INSOMNIA [None]
  - SPINAL PAIN [None]
  - SKIN MASS [None]
  - CONSTIPATION [None]
  - ANAEMIA [None]
  - ASTHMATIC CRISIS [None]
  - PROTEIN TOTAL DECREASED [None]
  - BLOOD CHOLESTEROL INCREASED [None]
  - NAUSEA [None]
  - HYPOTENSION [None]
  - CHILLS [None]
  - MUSCULAR WEAKNESS [None]
  - MUSCULOSKELETAL STIFFNESS [None]
  - MUSCULOSKELETAL DISORDER [None]
  - KNEE ARTHROPLASTY [None]
  - HEPATITIS C [None]
